FAERS Safety Report 16632598 (Version 1)
Quarter: 2019Q3

REPORT INFORMATION
  Report Type: Report from Study
  Country: RO (occurrence: RO)
  Receive Date: 20190725
  Receipt Date: 20190725
  Transmission Date: 20191004
  Serious: Yes (Hospitalization, Other)
  Sender: FDA-Public Use
  Company Number: RO-GILEAD-2019-0419272

PATIENT
  Age: 75 Year
  Sex: Female

DRUGS (12)
  1. VITAMIN B1 AND B6 [Concomitant]
     Active Substance: PYRIDOXINE HYDROCHLORIDE\THIAMINE HYDROCHLORIDE
  2. PROPRANOLOL [Concomitant]
     Active Substance: PROPRANOLOL HYDROCHLORIDE
  3. ALGOCALMIN [Concomitant]
     Active Substance: METAMIZOLE SODIUM
  4. FRAXIPARINE [Concomitant]
     Active Substance: NADROPARIN CALCIUM
  5. DIGOXIN. [Concomitant]
     Active Substance: DIGOXIN
  6. NACL [Concomitant]
     Active Substance: SODIUM CHLORIDE
  7. PRESTARIUM [PERINDOPRIL] [Concomitant]
  8. PARACETAMOL [Concomitant]
     Active Substance: ACETAMINOPHEN
  9. ARGININA [ARGININE] [Concomitant]
  10. TROMBOSTOP [Concomitant]
     Active Substance: ACENOCOUMAROL
  11. LEDIPASVIR/SOFOSBUVIR [Suspect]
     Active Substance: LEDIPASVIR\SOFOSBUVIR
     Indication: CHRONIC HEPATITIS C
     Dosage: 1 DOSAGE FORM, QD
     Route: 048
     Dates: start: 20190204, end: 20190428
  12. ENTECAVIR. [Concomitant]
     Active Substance: ENTECAVIR

REACTIONS (7)
  - Hand fracture [Not Recovered/Not Resolved]
  - Decreased appetite [Recovered/Resolved]
  - Dizziness [Recovered/Resolved]
  - Lower limb fracture [Unknown]
  - Fall [Unknown]
  - Femur fracture [Recovering/Resolving]
  - Malaise [Recovered/Resolved]

NARRATIVE: CASE EVENT DATE: 201906
